FAERS Safety Report 19064195 (Version 1)
Quarter: 2021Q1

REPORT INFORMATION
  Report Type: Report from Study
  Country: GB (occurrence: GB)
  Receive Date: 20210326
  Receipt Date: 20210326
  Transmission Date: 20210420
  Serious: Yes (Other)
  Sender: FDA-Public Use
  Company Number: GB-PFIZER INC-2021300771

PATIENT
  Age: 74 Year
  Sex: Female

DRUGS (2)
  1. IMRALDI [Suspect]
     Active Substance: ADALIMUMAB
     Indication: PSORIATIC ARTHROPATHY
     Dosage: 40 MG EVERY 2 WEEKS
     Route: 058
  2. METHOTREXATE SODIUM. [Suspect]
     Active Substance: METHOTREXATE SODIUM
     Dosage: 7.5 MG
     Route: 065

REACTIONS (6)
  - Mobility decreased [Unknown]
  - Liver disorder [Unknown]
  - Psoriatic arthropathy [Unknown]
  - Neutropenia [Unknown]
  - Rheumatic disorder [Unknown]
  - Hand deformity [Unknown]
